FAERS Safety Report 4277800-4 (Version None)
Quarter: 2004Q1

REPORT INFORMATION
  Report Type: 
  Country: None (occurrence: None)
  Receive Date: 20040121
  Receipt Date: 20040105
  Transmission Date: 20041129
  Serious: Yes (Hospitalization)
  Sender: FDA-Public Use
  Company Number: F02200300136

PATIENT
  Age: 68 Year
  Sex: Male

DRUGS (4)
  1. XATRAL - (ALFUZOSIN) - TABLET PR - 10 MG [Suspect]
     Indication: BENIGN PROSTATIC HYPERPLASIA
     Dosage: 10 MG OD ORAL
     Route: 048
     Dates: start: 20001207, end: 20031117
  2. FENOFIBRATE [Concomitant]
  3. TANAKAN (GINKGO TREE LEAVES EXTRACT) [Concomitant]
  4. ALLOPURINOL [Concomitant]

REACTIONS (4)
  - AORTIC VALVE INCOMPETENCE [None]
  - MITRAL VALVE INCOMPETENCE [None]
  - PROSTATE CANCER [None]
  - VENTRICULAR HYPERTROPHY [None]
